FAERS Safety Report 23672053 (Version 1)
Quarter: 2024Q1

REPORT INFORMATION
  Report Type: Spontaneous
  Country: JP (occurrence: JP)
  Receive Date: 20240326
  Receipt Date: 20240326
  Transmission Date: 20240410
  Serious: Yes (Death, Other)
  Sender: FDA-Public Use
  Company Number: JP-shionogi-202402297

PATIENT
  Age: 45 Year
  Sex: Male
  Weight: 77.1 kg

DRUGS (4)
  1. CYCLOPHOSPHAMIDE [Suspect]
     Active Substance: CYCLOPHOSPHAMIDE
     Indication: Bone marrow conditioning regimen
     Dosage: 60 MG/KG/DAY
     Route: 065
  2. CYTARABINE [Concomitant]
     Active Substance: CYTARABINE
     Indication: Bone marrow conditioning regimen
     Dosage: 2000 MG/M2/DAY FOR 2 DAYS (HIGH-DOSE)
     Route: 065
  3. MICAFUNGIN SODIUM [Concomitant]
     Active Substance: MICAFUNGIN SODIUM
     Route: 065
  4. POSACONAZOLE [Concomitant]
     Active Substance: POSACONAZOLE
     Route: 048

REACTIONS (6)
  - Cardiomyopathy [Fatal]
  - Chest discomfort [Fatal]
  - Myocardial necrosis marker increased [Fatal]
  - Sinus tachycardia [Fatal]
  - Blood pressure decreased [Fatal]
  - Electrocardiogram low voltage [Fatal]
